FAERS Safety Report 6168295-4 (Version None)
Quarter: 2009Q2

REPORT INFORMATION
  Report Type: 
  Country: None (occurrence: None)
  Receive Date: 20090424
  Receipt Date: 20090424
  Transmission Date: 20091009
  Serious: Yes (Death)
  Sender: FDA-Public Use
  Company Number: None

PATIENT
  Age: 66 Year
  Sex: Male

DRUGS (1)
  1. DIGOXIN [Suspect]
     Indication: HYPERTENSION
     Dosage: TK 1 TAB DAILY PO ONLY 1 DOSE TAKEN
     Route: 048
     Dates: start: 20081128, end: 20081205

REACTIONS (2)
  - ARRHYTHMIA [None]
  - FALL [None]
